FAERS Safety Report 23462952 (Version 1)
Quarter: 2024Q1

REPORT INFORMATION
  Report Type: Spontaneous
  Country: US (occurrence: US)
  Receive Date: 20240131
  Receipt Date: 20240131
  Transmission Date: 20240410
  Serious: No
  Sender: FDA-Public Use
  Company Number: US-PFIZER INC-PV202400013003

PATIENT
  Age: 57 Year
  Sex: Male

DRUGS (2)
  1. XELJANZ XR [Suspect]
     Active Substance: TOFACITINIB CITRATE
     Dosage: UNK
  2. PREDNISONE [Suspect]
     Active Substance: PREDNISONE
     Dosage: UNK

REACTIONS (3)
  - Pollakiuria [Not Recovered/Not Resolved]
  - Dehydration [Not Recovered/Not Resolved]
  - Nephropathy [Unknown]
